FAERS Safety Report 4687395-9 (Version None)
Quarter: 2005Q2

REPORT INFORMATION
  Report Type: 
  Country: None (occurrence: None)
  Receive Date: 20050608
  Receipt Date: 20050526
  Transmission Date: 20051028
  Serious: Yes (Hospitalization, Other)
  Sender: FDA-Public Use
  Company Number: 2005067066

PATIENT
  Sex: Female
  Weight: 72.5755 kg

DRUGS (2)
  1. DEPO-PROVERA [Suspect]
     Indication: CONTRACEPTION
     Dosage: 150 MG (150 MG, LAST INJECTION, EVERY 3 MONTHS), INTRAMUSCULAR
     Route: 030
     Dates: start: 20050120, end: 20050120
  2. AXERT [Concomitant]

REACTIONS (2)
  - COLITIS ISCHAEMIC [None]
  - ILEUS [None]
